FAERS Safety Report 7299118-8 (Version None)
Quarter: 2010Q4

REPORT INFORMATION
  Report Type: 
  Country: None (occurrence: None)
  Receive Date: 20101223
  Receipt Date: 20101025
  Transmission Date: 20110411
  Serious: Yes (Other)
  Sender: FDA-Public Use
  Company Number: 251710USA

PATIENT
  Age: 22 Year
  Sex: Female

DRUGS (2)
  1. PARAGARD T 380A [Suspect]
     Indication: CONTRACEPTION
     Dosage: I.U.
     Dates: start: 20100818, end: 20101006
  2. PRENATAL VITAMINS [Concomitant]

REACTIONS (2)
  - DEVICE DISLOCATION [None]
  - VAGINAL HAEMORRHAGE [None]
